FAERS Safety Report 17755183 (Version 2)
Quarter: 2020Q2

REPORT INFORMATION
  Report Type: Spontaneous
  Country: US (occurrence: US)
  Receive Date: 20200507
  Receipt Date: 20200512
  Transmission Date: 20200714
  Serious: Yes (Hospitalization, Other)
  Sender: FDA-Public Use
  Company Number: US-ASTRAZENECA-2020SE59356

PATIENT
  Sex: Female
  Weight: 49.9 kg

DRUGS (18)
  1. SYNTHROID [Concomitant]
     Active Substance: LEVOTHYROXINE SODIUM
     Indication: HYPOTHYROIDISM
     Route: 048
  2. SYNTHROID [Concomitant]
     Active Substance: LEVOTHYROXINE SODIUM
     Indication: HYPOTHYROIDISM
     Dosage: REDUCED
     Route: 048
  3. VALTREX [Concomitant]
     Active Substance: VALACYCLOVIR HYDROCHLORIDE
     Indication: ORAL HERPES
     Dosage: 2.0G AS REQUIRED
     Route: 048
  4. SYNTHROID [Concomitant]
     Active Substance: LEVOTHYROXINE SODIUM
     Indication: THYROID DISORDER
     Route: 048
  5. LORAZEPAM. [Concomitant]
     Active Substance: LORAZEPAM
     Indication: ANXIETY
     Route: 048
  6. GLIMEPIRIDE. [Concomitant]
     Active Substance: GLIMEPIRIDE
     Indication: DIABETES MELLITUS
     Route: 048
  7. ADDERALL [Concomitant]
     Active Substance: AMPHETAMINE ASPARTATE\AMPHETAMINE SULFATE\DEXTROAMPHETAMINE SACCHARATE\DEXTROAMPHETAMINE SULFATE
     Indication: ATTENTION DEFICIT HYPERACTIVITY DISORDER
  8. ZENPEP [Concomitant]
     Active Substance: PANCRELIPASE AMYLASE\PANCRELIPASE LIPASE\PANCRELIPASE PROTEASE
     Indication: IRRITABLE BOWEL SYNDROME
     Route: 048
     Dates: end: 2018
  9. IRON [Concomitant]
     Active Substance: IRON
     Indication: ANAEMIA
     Route: 048
  10. VITAMIN B12 [Concomitant]
     Active Substance: CYANOCOBALAMIN
     Indication: VITAMIN B12
     Route: 048
  11. BYDUREON [Suspect]
     Active Substance: EXENATIDE
     Indication: WEIGHT CONTROL
     Route: 058
  12. METFORMIN [Concomitant]
     Active Substance: METFORMIN HYDROCHLORIDE
     Indication: DIABETES MELLITUS
     Route: 048
  13. WELLBUTRIN [Concomitant]
     Active Substance: BUPROPION HYDROCHLORIDE
     Indication: ATTENTION DEFICIT HYPERACTIVITY DISORDER
     Route: 048
  14. METOPROLOL SUCCINATE. [Concomitant]
     Active Substance: METOPROLOL SUCCINATE
     Indication: TACHYCARDIA
     Route: 048
  15. ZETIA [Concomitant]
     Active Substance: EZETIMIBE
     Indication: BLOOD CHOLESTEROL
     Route: 048
  16. IMITREX [Concomitant]
     Active Substance: SUMATRIPTAN SUCCINATE
     Indication: MIGRAINE
     Dosage: 100.0MG AS REQUIRED
     Route: 048
  17. BYDUREON BCISE [Suspect]
     Active Substance: EXENATIDE
     Indication: WEIGHT CONTROL
     Route: 058
  18. SYNTHROID [Concomitant]
     Active Substance: LEVOTHYROXINE SODIUM
     Indication: THYROID DISORDER
     Dosage: REDUCED
     Route: 048

REACTIONS (13)
  - Injection site mass [Recovered/Resolved]
  - Injection site pain [Unknown]
  - Intentional device misuse [Unknown]
  - Device leakage [Unknown]
  - Major depression [Unknown]
  - Depression suicidal [Unknown]
  - Bipolar disorder [Not Recovered/Not Resolved]
  - Glucose tolerance impaired [Unknown]
  - Incorrect dose administered by device [Unknown]
  - Anaemia [Unknown]
  - Attention deficit hyperactivity disorder [Not Recovered/Not Resolved]
  - Mania [Unknown]
  - Anxiety [Unknown]
